FAERS Safety Report 5176407-4 (Version None)
Quarter: 2006Q4

REPORT INFORMATION
  Report Type: 
  Country: None (occurrence: None)
  Receive Date: 20061215
  Receipt Date: 20061211
  Transmission Date: 20070319
  Serious: Yes (Death)
  Sender: FDA-Public Use
  Company Number: US-MERCK-0612USA01570

PATIENT
  Age: 81 Year
  Sex: Female

DRUGS (4)
  1. ZOCOR [Suspect]
     Indication: ISCHAEMIC HEART DISEASE PROPHYLAXIS
     Route: 065
     Dates: start: 20061130, end: 20061201
  2. HEPARIN [Concomitant]
     Route: 065
  3. REGLAN [Concomitant]
     Route: 065
  4. LASIX [Concomitant]
     Route: 065

REACTIONS (2)
  - CARDIAC ARREST [None]
  - INCORRECT ROUTE OF DRUG ADMINISTRATION [None]
